APPROVED DRUG PRODUCT: TRELSTAR
Active Ingredient: TRIPTORELIN PAMOATE
Strength: EQ 22.5MG BASE/VIAL
Dosage Form/Route: INJECTABLE;INTRAMUSCULAR
Application: N022437 | Product #001
Applicant: VERITY PHARMACEUTICALS INC
Approved: Mar 10, 2010 | RLD: Yes | RS: Yes | Type: RX

PATENTS:
Patent 10166181 | Expires: Jun 30, 2029